FAERS Safety Report 4510031-9 (Version None)
Quarter: 2004Q4

REPORT INFORMATION
  Report Type: 
  Country: None (occurrence: None)
  Receive Date: 20041124
  Receipt Date: 20040511
  Transmission Date: 20050328
  Serious: Yes (Life-Threatening)
  Sender: FDA-Public Use
  Company Number: PHHO2004IN06755

PATIENT
  Age: 52 Year
  Sex: Male

DRUGS (3)
  1. GLEEVEC [Suspect]
     Indication: CHRONIC MYELOID LEUKAEMIA
     Dosage: 400 MG, QD
     Route: 048
     Dates: start: 20040402, end: 20040527
  2. GLEEVEC [Suspect]
     Dosage: NO TREATMENT
  3. GLEEVEC [Suspect]
     Route: 048

REACTIONS (4)
  - ANXIETY [None]
  - DERMATITIS ALLERGIC [None]
  - DRUG HYPERSENSITIVITY [None]
  - DYSPNOEA [None]
